FAERS Safety Report 13321731 (Version 3)
Quarter: 2017Q2

REPORT INFORMATION
  Report Type: Spontaneous
  Country: US (occurrence: US)
  Receive Date: 20170309
  Receipt Date: 20170410
  Transmission Date: 20170830
  Serious: Yes (Other)
  Sender: FDA-Public Use
  Company Number: US-PFIZER INC-2017095338

PATIENT
  Sex: Female

DRUGS (3)
  1. GABAPENTIN. [Suspect]
     Active Substance: GABAPENTIN
     Indication: NEURALGIA
     Dosage: 100 MG, 3X/DAY
  2. GABAPENTIN. [Suspect]
     Active Substance: GABAPENTIN
     Dosage: 300 MG, 2X/DAY
  3. GABAPENTIN. [Suspect]
     Active Substance: GABAPENTIN
     Dosage: 300 MG, 3X/DAY

REACTIONS (11)
  - Product use in unapproved indication [Unknown]
  - Gait disturbance [Unknown]
  - Fatigue [Unknown]
  - Drug dose omission [Unknown]
  - Pneumonia [Unknown]
  - Coordination abnormal [Unknown]
  - Dehydration [Unknown]
  - Crying [Unknown]
  - Renal failure [Unknown]
  - Dizziness [Unknown]
  - Somnolence [Unknown]
